FAERS Safety Report 19204690 (Version 1)
Quarter: 2021Q2

REPORT INFORMATION
  Report Type: Spontaneous
  Country: US (occurrence: US)
  Receive Date: 20210503
  Receipt Date: 20210503
  Transmission Date: 20210717
  Serious: No
  Sender: FDA-Public Use
  Company Number: US-GLAXOSMITHKLINE-USCH2021AMR021433

PATIENT
  Sex: Female

DRUGS (6)
  1. ADVIL [Suspect]
     Active Substance: IBUPROFEN
     Indication: INJECTION SITE PAIN
     Dosage: UNK
     Route: 065
  2. ADVIL [Suspect]
     Active Substance: IBUPROFEN
     Indication: PYREXIA
  3. ADVIL [Suspect]
     Active Substance: IBUPROFEN
     Indication: CHILLS
  4. ADVIL [Suspect]
     Active Substance: IBUPROFEN
     Indication: LYMPHADENOPATHY
  5. ADVIL [Suspect]
     Active Substance: IBUPROFEN
     Indication: FEELING ABNORMAL
  6. ADVIL [Suspect]
     Active Substance: IBUPROFEN
     Indication: HEADACHE

REACTIONS (2)
  - Drug effective for unapproved indication [Unknown]
  - Product use in unapproved indication [Unknown]
